FAERS Safety Report 11781447 (Version 1)
Quarter: 2015Q4

REPORT INFORMATION
  Report Type: Spontaneous
  Country: RU (occurrence: RU)
  Receive Date: 20151126
  Receipt Date: 20151126
  Transmission Date: 20160305
  Serious: Yes (Other)
  Sender: FDA-Public Use
  Company Number: RU-JNJFOC-20151116180

PATIENT
  Sex: Male

DRUGS (4)
  1. PREDNISOLONE. [Concomitant]
     Active Substance: PREDNISOLONE
     Indication: PROSTATE CANCER METASTATIC
     Route: 065
  2. ZOLEDRONIC ACID [Concomitant]
     Active Substance: ZOLEDRONIC ACID
     Indication: PROSTATE CANCER METASTATIC
     Route: 042
  3. ZYTIGA [Suspect]
     Active Substance: ABIRATERONE ACETATE
     Indication: PROSTATE CANCER METASTATIC
     Dosage: FOUR TABLETS 250 MG EACH- 1 HOUR BEFORE MEALS OR 2 HOURS AFTER MEALS
     Route: 048
  4. DENOSUMAB [Concomitant]
     Active Substance: DENOSUMAB
     Indication: PROSTATE CANCER METASTATIC
     Route: 058

REACTIONS (10)
  - Prostate cancer metastatic [Unknown]
  - Oedema peripheral [Unknown]
  - Hypertension [Unknown]
  - Asthenia [Unknown]
  - Nausea [Unknown]
  - Cardiotoxicity [Unknown]
  - Pain [Unknown]
  - Hepatotoxicity [Unknown]
  - Urinary tract infection [Unknown]
  - Vomiting [Unknown]
